FAERS Safety Report 5520795-3 (Version None)
Quarter: 2007Q4

REPORT INFORMATION
  Report Type: 
  Country: None (occurrence: None)
  Receive Date: 20071116
  Receipt Date: 20071116
  Transmission Date: 20080405
  Serious: No
  Sender: FDA-Public Use
  Company Number: None

PATIENT
  Age: 43 Year

DRUGS (2)
  1. DIPRIVAN [Suspect]
     Indication: ANAESTHESIA
     Dosage: ANEX1 IV
     Route: 042
     Dates: start: 20070723, end: 20070723
  2. DIPRIVAN [Suspect]
     Indication: SURGERY
     Dosage: ANEX1 IV
     Route: 042
     Dates: start: 20070723, end: 20070723

REACTIONS (2)
  - ERYTHEMA [None]
  - URTICARIA [None]
